FAERS Safety Report 8793368 (Version 3)
Quarter: 2012Q4

REPORT INFORMATION
  Report Type: Report from Study
  Country: US (occurrence: US)
  Receive Date: 20120917
  Receipt Date: 20121008
  Transmission Date: 20130627
  Serious: Yes (Other)
  Sender: FDA-Public Use
  Company Number: US-ABBOTT-12P-163-0977751-00

PATIENT
  Age: 57 None
  Sex: Female
  Weight: 63.11 kg

DRUGS (13)
  1. HUMIRA [Suspect]
     Indication: RHEUMATOID ARTHRITIS
     Dates: start: 2010
  2. HUMIRA [Suspect]
     Dates: start: 20120907, end: 20120907
  3. METHOTREXATE [Concomitant]
     Indication: RHEUMATOID ARTHRITIS
     Dosage: 10 pills weekly
  4. PREDNISONE [Concomitant]
     Indication: RHEUMATOID ARTHRITIS
  5. NEXIUM [Concomitant]
     Indication: GASTROOESOPHAGEAL REFLUX DISEASE
  6. FLONASE [Concomitant]
     Indication: HYPERSENSITIVITY
     Dosage: 2 sprays in each nostril
  7. REQUIP [Concomitant]
     Indication: RESTLESS LEGS SYNDROME
  8. TRAMADOL [Concomitant]
     Indication: PAIN
  9. FOLIC ACID [Concomitant]
     Indication: PRODUCT USED FOR UNKNOWN INDICATION
  10. ALBUTEROL SULFATE [Concomitant]
     Indication: WHEEZING
     Dosage: As needed
  11. TYLENOL [Concomitant]
     Indication: PAIN
     Dosage: 2 tablets as needed
  12. CALCIUM WITH VITAMIN D [Concomitant]
     Indication: PRODUCT USED FOR UNKNOWN INDICATION
     Dosage: 800-1000mg every day
  13. CLONAZEPAM [Concomitant]
     Indication: PANIC ATTACK

REACTIONS (17)
  - Pulmonary mass [Not Recovered/Not Resolved]
  - Expired drug administered [Recovered/Resolved]
  - Injection site pain [Not Recovered/Not Resolved]
  - Nasopharyngitis [Not Recovered/Not Resolved]
  - Nasal congestion [Not Recovered/Not Resolved]
  - Cough [Not Recovered/Not Resolved]
  - Night sweats [Not Recovered/Not Resolved]
  - Insomnia [Not Recovered/Not Resolved]
  - Feeling drunk [Not Recovered/Not Resolved]
  - Panic attack [Recovered/Resolved]
  - Feeling jittery [Recovered/Resolved]
  - Nervousness [Recovered/Resolved]
  - Skin oedema [Not Recovered/Not Resolved]
  - Pruritus [Recovering/Resolving]
  - Bronchospasm [Not Recovered/Not Resolved]
  - Hypersensitivity [Not Recovered/Not Resolved]
  - Expired drug administered [Not Recovered/Not Resolved]
